FAERS Safety Report 5345005-1 (Version None)
Quarter: 2007Q2

REPORT INFORMATION
  Report Type: 
  Country: None (occurrence: None)
  Receive Date: 20070416
  Receipt Date: 20061222
  Transmission Date: 20071010
  Serious: No
  Sender: FDA-Public Use
  Company Number: 2006SP004488

PATIENT
  Age: 46 Year
  Sex: Male

DRUGS (12)
  1. LUNESTA [Suspect]
     Indication: INSOMNIA
     Dosage: SEE IMAGE
     Route: 048
     Dates: start: 20061221, end: 20061221
  2. LUNESTA [Suspect]
     Indication: INSOMNIA
     Dosage: SEE IMAGE
     Route: 048
     Dates: start: 20061223, end: 20061223
  3. LUNESTA [Suspect]
     Indication: INSOMNIA
     Dosage: SEE IMAGE
     Route: 048
     Dates: start: 20061228
  4. PANTOPRAZOLE SODIUM [Concomitant]
  5. LASIX [Concomitant]
  6. VIREAD [Concomitant]
  7. ABACAVIR SULFATE W/ LAMIVUDINE/ZIDOVUDINE [Concomitant]
  8. NELFINAVIR [Concomitant]
  9. POLYETHYLENE GLYCOL [Concomitant]
  10. MS CONTIN [Concomitant]
  11. MORPHINE SULFATE [Concomitant]
  12. METHADONE HYDROCHLORIDE [Concomitant]

REACTIONS (1)
  - DYSGEUSIA [None]
